FAERS Safety Report 6800635-2 (Version None)
Quarter: 2010Q2

REPORT INFORMATION
  Report Type: 
  Country: None (occurrence: None)
  Receive Date: 20100625
  Receipt Date: 20100625
  Transmission Date: 20101027
  Serious: Yes (Death)
  Sender: FDA-Public Use
  Company Number: None

PATIENT
  Sex: Female
  Weight: 86 kg

DRUGS (2)
  1. LEVAQUIN [Suspect]
     Indication: ANTIBIOTIC PROPHYLAXIS
     Dosage: 500MG ONCE IV, LESS THAN 5 MINUTES
     Route: 042
  2. LEVAQUIN [Suspect]
     Indication: CHOLECYSTECTOMY
     Dosage: 500MG ONCE IV, LESS THAN 5 MINUTES
     Route: 042

REACTIONS (5)
  - BRADYCARDIA [None]
  - BRONCHOSPASM [None]
  - CARDIO-RESPIRATORY ARREST [None]
  - HYPOTENSION [None]
  - OXYGEN SATURATION DECREASED [None]
